FAERS Safety Report 9524093 (Version 1)
Quarter: 2013Q1

REPORT INFORMATION
  Report Type: Spontaneous
  Country: US (occurrence: None)
  Receive Date: 20130314
  Receipt Date: 20130314
  Transmission Date: 20140127
  Serious: No
  Sender: FDA-Public Use
  Company Number: 1301USA013652

PATIENT
  Age: 56 Year
  Sex: Male
  Weight: 85.28 kg

DRUGS (6)
  1. VICTRELIS (BOCEPREVIR) CAPSULE, 200MG [Suspect]
     Route: 048
  2. PEGASYS (PEGINTERFERON ALFA-2A) INJECTION [Suspect]
  3. RIBAVIRIN [Suspect]
     Route: 048
  4. LORAZEPAM (LORAZEPAM) [Concomitant]
  5. OXYCODONE (OXYCODONE) [Concomitant]
  6. LOSARTAN POTASSIUM (LOSARTAN POTASSIUM) [Concomitant]

REACTIONS (2)
  - Fatigue [None]
  - Anaemia [None]
